FAERS Safety Report 16435091 (Version 1)
Quarter: 2019Q2

REPORT INFORMATION
  Report Type: Spontaneous
  Country: FR (occurrence: FR)
  Receive Date: 20190614
  Receipt Date: 20190614
  Transmission Date: 20190711
  Serious: Yes (Other)
  Sender: FDA-Public Use
  Company Number: FR-MYLANLABS-2019M1054914

PATIENT

DRUGS (1)
  1. ETOPOSIDE MYLAN 20 MG/ML, SOLUTION ? DILUER POUR PERFUSION [Suspect]
     Active Substance: ETOPOSIDE
     Indication: PRODUCT USED FOR UNKNOWN INDICATION
     Dosage: UNK

REACTIONS (3)
  - Dyspnoea [Recovered/Resolved]
  - Type I hypersensitivity [Recovered/Resolved]
  - Palpitations [Recovered/Resolved]
